FAERS Safety Report 6885580-9 (Version None)
Quarter: 2010Q3

REPORT INFORMATION
  Report Type: 
  Country: None (occurrence: None)
  Receive Date: 20100729
  Receipt Date: 20080616
  Transmission Date: 20110219
  Serious: No
  Sender: FDA-Public Use
  Company Number: JP-PFIZER INC-2008066109

PATIENT
  Age: 84 Year
  Sex: Male

DRUGS (2)
  1. CORTRIL [Suspect]
     Route: 048
  2. THYRADIN [Suspect]
     Route: 048

REACTIONS (1)
  - LIVER DISORDER [None]
